FAERS Safety Report 10537057 (Version 2)
Quarter: 2015Q3

REPORT INFORMATION
  Report Type: Spontaneous
  Country: US (occurrence: US)
  Receive Date: 20141022
  Receipt Date: 20150818
  Transmission Date: 20151125
  Serious: No
  Sender: FDA-Public Use
  Company Number: US-GILEAD-2014-0119487

PATIENT
  Age: 70 Year
  Sex: Female

DRUGS (14)
  1. LOPERAMIDE [Concomitant]
     Active Substance: LOPERAMIDE
  2. TYLENOL [Concomitant]
     Active Substance: ACETAMINOPHEN
  3. PENTOXYFYLLINE [Concomitant]
  4. SYNTHROID [Concomitant]
     Active Substance: LEVOTHYROXINE SODIUM
  5. WARFARIN [Concomitant]
     Active Substance: WARFARIN
  6. LETAIRIS [Suspect]
     Active Substance: AMBRISENTAN
     Indication: PULMONARY ARTERIAL HYPERTENSION
     Dosage: 5 MG, QD
     Route: 065
     Dates: start: 20140923
  7. REMODULIN [Concomitant]
     Active Substance: TREPROSTINIL
  8. FAMOTIDINE. [Concomitant]
     Active Substance: FAMOTIDINE
  9. OMEPRAZOLE. [Concomitant]
     Active Substance: OMEPRAZOLE
  10. DOXYCYCLINE. [Suspect]
     Active Substance: DOXYCYCLINE
  11. ZYRTEC [Concomitant]
     Active Substance: CETIRIZINE HYDROCHLORIDE
  12. MIRTAZEPINE TEVA [Concomitant]
     Active Substance: MIRTAZAPINE
  13. FUROSEMIDE. [Concomitant]
     Active Substance: FUROSEMIDE
  14. BUPROPION. [Concomitant]
     Active Substance: BUPROPION

REACTIONS (1)
  - Vomiting [Recovered/Resolved]

NARRATIVE: CASE EVENT DATE: 20140924
